FAERS Safety Report 17693334 (Version 1)
Quarter: 2020Q2

REPORT INFORMATION
  Report Type: Spontaneous
  Country: TR (occurrence: TR)
  Receive Date: 20200422
  Receipt Date: 20200422
  Transmission Date: 20200714
  Serious: Yes (Other)
  Sender: FDA-Public Use
  Company Number: TR-ASTRAZENECA-2020SE53422

PATIENT
  Age: 61 Year
  Sex: Male
  Weight: 78 kg

DRUGS (7)
  1. RHINOCORT [Suspect]
     Active Substance: BUDESONIDE
     Route: 045
  2. GLUKOFEN [Concomitant]
     Active Substance: METFORMIN HYDROCHLORIDE
     Indication: DIABETES MELLITUS
     Dosage: ONCE A DAY IN FIRST PERIOD THEN INCREASED TWICE A DAY AND THEN THREE TIMES A DAY
     Route: 048
     Dates: start: 2006
  3. SYMBICORT [Concomitant]
     Active Substance: BUDESONIDE\FORMOTEROL FUMARATE DIHYDRATE
     Indication: ASTHMA
     Dosage: 160
  4. LEVMONT [Concomitant]
     Indication: UPPER-AIRWAY COUGH SYNDROME
     Dosage: 5/10 ONCE A DAY
     Route: 048
     Dates: start: 2015
  5. SYMBICORT [Concomitant]
     Active Substance: BUDESONIDE\FORMOTEROL FUMARATE DIHYDRATE
     Indication: ASTHMA
     Dosage: 320/90 ONCE A DAY (WHEN IT IS REQUIRED)
     Route: 048
     Dates: start: 1999
  6. RINO-CLENIL [Suspect]
     Active Substance: BECLOMETHASONE DIPROPIONATE
     Indication: RHINITIS ALLERGIC
     Dosage: TWICE A DAY AND TWICE INHALATION EACH TIME, IN SERIOUS CASE IN EVENING AND MORNING
     Route: 045
     Dates: start: 1999
  7. SINORETIK FORT [Concomitant]
     Indication: HYPERTENSION
     Dosage: ONCE A DAY
     Route: 048
     Dates: start: 1999

REACTIONS (2)
  - Body height decreased [Not Recovered/Not Resolved]
  - Bone loss [Not Recovered/Not Resolved]

NARRATIVE: CASE EVENT DATE: 2019
